FAERS Safety Report 9691787 (Version 1)
Quarter: 2013Q4

REPORT INFORMATION
  Report Type: Spontaneous
  Country: DE (occurrence: DE)
  Receive Date: 20131115
  Receipt Date: 20131115
  Transmission Date: 20140711
  Serious: Yes (Other)
  Sender: FDA-Public Use
  Company Number: DE-GILEAD-2013-0087707

PATIENT
  Sex: Male

DRUGS (1)
  1. HEPSERA [Suspect]
     Indication: HEPATITIS D

REACTIONS (4)
  - Osteodystrophy [Unknown]
  - Osteoporosis [Unknown]
  - Walking disability [Unknown]
  - Renal impairment [Unknown]
